FAERS Safety Report 26087373 (Version 1)
Quarter: 2025Q4

REPORT INFORMATION
  Report Type: Spontaneous
  Country: US (occurrence: US)
  Receive Date: 20251125
  Receipt Date: 20251125
  Transmission Date: 20260117
  Serious: Yes (Other)
  Sender: COOPERSURGICAL
  Company Number: US-COOPERSURGICAL, INC.-2025CPS008036

PATIENT
  Age: 26 Year
  Sex: Female
  Weight: 68.934 kg

DRUGS (1)
  1. PARAGARD T 380A [Suspect]
     Active Substance: COPPER
     Indication: Contraception
     Dosage: UNK
     Route: 015
     Dates: start: 20140314

REACTIONS (20)
  - Surgery [Recovered/Resolved]
  - Caesarean section [Recovered/Resolved]
  - Abortion spontaneous [Recovered/Resolved]
  - Device breakage [Unknown]
  - Foreign body in reproductive tract [Unknown]
  - Complication of device removal [Unknown]
  - Embedded device [Unknown]
  - Pregnancy with contraceptive device [Unknown]
  - Drug ineffective [Unknown]
  - Device material issue [Recovered/Resolved]
  - Procedural pain [Recovered/Resolved]
  - Depression [Unknown]
  - Procedural nausea [Unknown]
  - Emotional distress [Not Recovered/Not Resolved]
  - Post procedural haemorrhage [Unknown]
  - Dysmenorrhoea [Recovered/Resolved]
  - Dyspareunia [Recovered/Resolved]
  - Vaginal haemorrhage [Unknown]
  - Vaginal discharge [Unknown]
  - Pelvic pain [Recovered/Resolved]

NARRATIVE: CASE EVENT DATE: 20140314
